FAERS Safety Report 6221425-8 (Version None)
Quarter: 2009Q2

REPORT INFORMATION
  Report Type: 
  Country: None (occurrence: None)
  Receive Date: 20090610
  Receipt Date: 20090604
  Transmission Date: 20091009
  Serious: Yes (Hospitalization)
  Sender: FDA-Public Use
  Company Number: US-CELGENEUS-163-21880-09060342

PATIENT
  Sex: Female

DRUGS (2)
  1. REVLIMID [Suspect]
     Indication: MULTIPLE MYELOMA
     Route: 048
     Dates: start: 20090520, end: 20090603
  2. REVLIMID [Suspect]
     Route: 048
     Dates: start: 20090605

REACTIONS (3)
  - ASTHENIA [None]
  - FATIGUE [None]
  - JOINT SWELLING [None]
